FAERS Safety Report 8546332-7 (Version None)
Quarter: 2012Q3

REPORT INFORMATION
  Report Type: 
  Country: None (occurrence: None)
  Receive Date: 20120727
  Receipt Date: 20111215
  Transmission Date: 20120928
  Serious: No
  Sender: FDA-Public Use
  Company Number: US-ASTRAZENECA-2011SE76262

PATIENT
  Age: 65 Year
  Sex: Female
  Weight: 97.5 kg

DRUGS (8)
  1. PRILOSEC [Concomitant]
     Indication: GASTROOESOPHAGEAL REFLUX DISEASE
     Dosage: 20.6, BID
  2. METOPROLOL TARTRATE [Concomitant]
     Indication: HYPERTENSION
  3. METFORMIN HCL [Concomitant]
  4. SEROQUEL XR [Suspect]
     Indication: DYSKINESIA
     Route: 048
     Dates: start: 20110211
  5. SEROQUEL XR [Suspect]
     Route: 048
     Dates: start: 20110211
  6. OTC ANTIDIARRHEAL [Concomitant]
     Indication: DIARRHOEA
     Dosage: PRN
  7. DEPAKOTE [Concomitant]
     Indication: DYSKINESIA
  8. KLONOPIN [Concomitant]
     Indication: DYSKINESIA
     Dosage: 1.25 MG IN THE MORNING, 0.25 MG AT 2 PM, 1 MG AT NIGHT

REACTIONS (3)
  - BLOOD GLUCOSE FLUCTUATION [None]
  - HYPERSOMNIA [None]
  - CONFUSIONAL STATE [None]
